FAERS Safety Report 13504785 (Version 1)
Quarter: 2017Q2

REPORT INFORMATION
  Report Type: Spontaneous
  Country: US (occurrence: US)
  Receive Date: 20170502
  Receipt Date: 20170502
  Transmission Date: 20170830
  Serious: No
  Sender: FDA-Public Use
  Company Number: US-IMPAX LABORATORIES, INC-2017-IPXL-00282

PATIENT
  Sex: Female

DRUGS (2)
  1. RYTARY [Suspect]
     Active Substance: CARBIDOPA\LEVODOPA
     Dosage: 36.25MG/145MG, 3 CAPSULES, FOUR TIMES
     Route: 048
  2. RYTARY [Suspect]
     Active Substance: CARBIDOPA\LEVODOPA
     Indication: PRODUCT USED FOR UNKNOWN INDICATION
     Dosage: 36.25MG/145MG, 3 CAPSULES, TID
     Route: 048

REACTIONS (3)
  - Tremor [Not Recovered/Not Resolved]
  - Gait disturbance [Unknown]
  - Freezing phenomenon [Unknown]
